FAERS Safety Report 8125819-5 (Version None)
Quarter: 2012Q1

REPORT INFORMATION
  Report Type: 
  Country: None (occurrence: None)
  Receive Date: 20120209
  Receipt Date: 20120127
  Transmission Date: 20120608
  Serious: Yes (Other)
  Sender: FDA-Public Use
  Company Number: FR-MYLANLABS-2012S1002296

PATIENT
  Sex: Female

DRUGS (2)
  1. FLUOROURACIL [Suspect]
     Indication: BREAST CANCER
     Dosage: 500 MG/M2 DAYS 1-5 AND VINORELBINE, EVERY 21 DAYS
     Route: 065
  2. VINORELBINE [Suspect]
     Indication: BREAST CANCER
     Dosage: 25 MG/M2 DAYS 1 AND 6, EVERY 21 DAYS
     Route: 065

REACTIONS (1)
  - SKIN TOXICITY [None]
